FAERS Safety Report 7162021-8 (Version None)
Quarter: 2010Q4

REPORT INFORMATION
  Report Type: 
  Country: None (occurrence: None)
  Receive Date: 20101215
  Receipt Date: 20100828
  Transmission Date: 20110411
  Serious: Yes (Other)
  Sender: FDA-Public Use
  Company Number: CA-PFIZER INC-2010088349

PATIENT
  Age: 48 Year
  Sex: Female

DRUGS (10)
  1. LYRICA [Suspect]
     Indication: PAIN
     Dosage: 75 MG, 2X/DAY
     Route: 048
     Dates: start: 20100713
  2. ARTHROTEC [Suspect]
     Indication: BACK PAIN
     Dosage: 75 MG, 2X/DAY
     Route: 048
     Dates: start: 20100713, end: 20100727
  3. CYCLOBENZAPRINE [Concomitant]
     Dosage: 5-10 MG AT BEDTIME
     Dates: start: 20100501
  4. BUPROPION [Concomitant]
     Dosage: UNK
  5. OLANZAPINE [Concomitant]
     Dosage: UNK
  6. DIVALPROEX SODIUM [Concomitant]
     Dosage: UNK
  7. SYNTHROID [Concomitant]
     Indication: HYPOTHYROIDISM
     Dosage: 0.1 MG, 1X/DAY
     Route: 048
     Dates: start: 20050930
  8. MEDROXYPROGESTERONE [Concomitant]
     Indication: MENOPAUSE
     Dosage: 10 MG, 1X/DAY, ON DAYS 14 TO 25 OF MENSTRUAL CYCLE
     Route: 048
     Dates: start: 20100216
  9. ESTRACE [Concomitant]
     Indication: MENOPAUSE
     Dosage: 1 MG, 1X/DAY
     Route: 048
     Dates: start: 20091209
  10. ESTRACE [Concomitant]

REACTIONS (3)
  - ABDOMINAL PAIN [None]
  - HEPATITIS [None]
  - HEPATOMEGALY [None]
